FAERS Safety Report 4593053-1 (Version None)
Quarter: 2005Q1

REPORT INFORMATION
  Report Type: 
  Country: None (occurrence: None)
  Receive Date: 20050301
  Receipt Date: 20040507
  Transmission Date: 20050727
  Serious: Yes (Hospitalization)
  Sender: FDA-Public Use
  Company Number: GB-JNJFOC-20040405467

PATIENT
  Sex: Female

DRUGS (7)
  1. REMICADE [Suspect]
     Indication: RHEUMATOID ARTHRITIS
     Route: 042
     Dates: start: 20030414, end: 20040302
  2. PREDNISOLONE [Concomitant]
  3. METHOTREXATE [Concomitant]
  4. CO-DYDRAMOL [Concomitant]
  5. CO-DYDRAMOL [Concomitant]
  6. RANITIDINE [Concomitant]
  7. FOLIC ACID [Concomitant]

REACTIONS (5)
  - INFLUENZA LIKE ILLNESS [None]
  - JOINT EFFUSION [None]
  - MUSCULOSKELETAL STIFFNESS [None]
  - PAIN [None]
  - RHEUMATOID ARTHRITIS [None]
